FAERS Safety Report 14962112 (Version 1)
Quarter: 2018Q2

REPORT INFORMATION
  Report Type: Spontaneous
  Country: RO (occurrence: RO)
  Receive Date: 20180601
  Receipt Date: 20180601
  Transmission Date: 20180711
  Serious: Yes (Death, Hospitalization, Other)
  Sender: FDA-Public Use
  Company Number: RO-AMGEN-ROUSP2018074438

PATIENT
  Age: 65 Year
  Sex: Male

DRUGS (7)
  1. GRANISETRON [Concomitant]
     Active Substance: GRANISETRON
     Dosage: 1 TB, UNK
     Dates: start: 20180319, end: 20180403
  2. KYPROLIS [Suspect]
     Active Substance: CARFILZOMIB
     Dosage: 100 MG, ON DAY 8, 9, 15 AND 16
     Route: 042
     Dates: start: 2018
  3. CONTROLOC [Concomitant]
     Active Substance: PANTOPRAZOLE SODIUM
     Dosage: UNK
  4. KYPROLIS [Suspect]
     Active Substance: CARFILZOMIB
     Indication: PLASMA CELL MYELOMA
     Dosage: 40 MG, ON DAY 1 AND 2
     Route: 042
     Dates: start: 20180219, end: 2018
  5. VALACICLOVIR [Concomitant]
     Active Substance: VALACYCLOVIR HYDROCHLORIDE
     Dosage: UNK (1 TB/12 HOURS)
  6. DEXAMETHAZONE [Concomitant]
     Active Substance: DEXAMETHASONE
     Dosage: 20 MG, UNK
  7. ALBUMINE [Concomitant]
     Active Substance: ALBUMIN HUMAN
     Dosage: 400 ML, UNK (1 VIAL)

REACTIONS (4)
  - Adverse event [Unknown]
  - Fall [Unknown]
  - Femur fracture [Unknown]
  - Cardiac arrest [Fatal]

NARRATIVE: CASE EVENT DATE: 20180403
